FAERS Safety Report 7395518-6 (Version None)
Quarter: 2011Q1

REPORT INFORMATION
  Report Type: 
  Country: None (occurrence: None)
  Receive Date: 20110325
  Receipt Date: 20110315
  Transmission Date: 20110831
  Serious: Yes (Hospitalization)
  Sender: FDA-Public Use
  Company Number: LEO-2011-00153

PATIENT
  Age: 21 Year
  Sex: Female

DRUGS (1)
  1. INNOHEP [Suspect]
     Indication: THROMBOSIS PROPHYLAXIS
     Dosage: 9000 IU (4500 IU, 2 IN 1 D), SUBCUTANEOUS; 4500 IU (4500 IU, 1 IN 1 D), SUBCUTANEOUS
     Route: 058
     Dates: start: 20101018, end: 20101104

REACTIONS (5)
  - OVERDOSE [None]
  - PRURITUS [None]
  - SKIN LESION [None]
  - INAPPROPRIATE SCHEDULE OF DRUG ADMINISTRATION [None]
  - RASH PAPULAR [None]
